FAERS Safety Report 6547270-1 (Version None)
Quarter: 2010Q1

REPORT INFORMATION
  Report Type: 
  Country: None (occurrence: None)
  Receive Date: 20100122
  Receipt Date: 20091118
  Transmission Date: 20100710
  Serious: No
  Sender: FDA-Public Use
  Company Number: US-BAUSCH-2009BL006107

PATIENT
  Age: 44 Year
  Sex: Female

DRUGS (1)
  1. ZYLET [Suspect]
     Indication: CONJUNCTIVITIS
     Route: 047
     Dates: start: 20091112, end: 20091113

REACTIONS (4)
  - CONJUNCTIVAL DISORDER [None]
  - CONJUNCTIVAL OEDEMA [None]
  - EYE SWELLING [None]
  - OCULAR HYPERAEMIA [None]
